FAERS Safety Report 19939037 (Version 1)
Quarter: 2021Q4

REPORT INFORMATION
  Report Type: Report from Study
  Country: PT (occurrence: PT)
  Receive Date: 20211011
  Receipt Date: 20211011
  Transmission Date: 20220304
  Serious: Yes (Hospitalization)
  Sender: FDA-Public Use
  Company Number: PT-002147023-NVSC2020PT349090

PATIENT
  Age: 58 Year
  Sex: Male

DRUGS (18)
  1. SERTRALINE [Suspect]
     Active Substance: SERTRALINE HYDROCHLORIDE
     Indication: Product used for unknown indication
     Dosage: 50 MILLIGRAM, QD
     Route: 065
  2. ENTRESTO [Suspect]
     Active Substance: SACUBITRIL\VALSARTAN
     Indication: Cardiac failure
     Dosage: 100 MG, BID
     Route: 048
     Dates: start: 20200131
  3. ENTRESTO [Suspect]
     Active Substance: SACUBITRIL\VALSARTAN
     Dosage: 200 (97/103) MG, BID (FOR 100 DAYS)
     Route: 065
  4. XOTERNA [Concomitant]
     Indication: Product used for unknown indication
     Dosage: 43/85 UG, QD
     Route: 055
  5. PREGABALINA RATIOPHARM [Concomitant]
     Indication: Product used for unknown indication
     Dosage: 150 MILLIGRAM, QD
     Route: 065
  6. ACEMETACIN [Concomitant]
     Active Substance: ACEMETACIN
     Indication: Product used for unknown indication
     Dosage: 90 MG, QD
     Route: 065
  7. IPRATROPIUM BROMIDE [Concomitant]
     Active Substance: IPRATROPIUM BROMIDE
     Indication: Product used for unknown indication
     Dosage: 20 MICROGRAM, QD
     Route: 055
  8. TRAZODONA GENERIS [Concomitant]
     Indication: Product used for unknown indication
     Dosage: 150 MG, QD (AFTER DINNER)
     Route: 065
  9. VENLAFAXINE [Concomitant]
     Active Substance: VENLAFAXINE HYDROCHLORIDE
     Indication: Product used for unknown indication
     Dosage: 75 MILLIGRAM, QD
     Route: 065
  10. MONTELUCASTE PHARMAKERN [Concomitant]
     Indication: Product used for unknown indication
     Dosage: 10 MG, QD (AT BEDTIME)
     Route: 065
  11. ATORVASTATIN CALCIUM [Concomitant]
     Active Substance: ATORVASTATIN CALCIUM
     Indication: Product used for unknown indication
     Dosage: 40 MG, QD
     Route: 065
     Dates: start: 20210206
  12. QUETIAPINA TOLIFE [Concomitant]
     Indication: Product used for unknown indication
     Dosage: 100 MG, QD (FOR 60 DAYS-DINNER)
     Route: 065
  13. SERENAL                            /00036302/ [Concomitant]
     Indication: Product used for unknown indication
     Dosage: 50 MG, QD (AT NIGHT)
     Route: 065
  14. SERENAL                            /00036302/ [Concomitant]
     Dosage: 15 MG, TID (FOR 60 DAYS)
     Route: 065
  15. VITERNUM [Concomitant]
     Indication: Product used for unknown indication
     Dosage: 6 MG, TID (1 TABLET BEFORE THE 3 MEALS)
     Route: 065
  16. MINERALS\VITAMINS [Concomitant]
     Active Substance: MINERALS\VITAMINS
     Indication: Product used for unknown indication
     Dosage: UNK
     Route: 065
  17. AMINOPHYLLINE [Concomitant]
     Active Substance: AMINOPHYLLINE
     Indication: Product used for unknown indication
     Dosage: 225 MG, QD (IN THE MORNING)
     Route: 065
  18. VERRUMAL                           /07245401/ [Concomitant]
     Indication: Product used for unknown indication
     Dosage: 100/5MG/ ML - 13 ML, BID
     Route: 065

REACTIONS (2)
  - Loss of consciousness [Recovered/Resolved]
  - Chronic obstructive pulmonary disease [Unknown]

NARRATIVE: CASE EVENT DATE: 20201030
